FAERS Safety Report 16679604 (Version 2)
Quarter: 2019Q3

REPORT INFORMATION
  Report Type: Report from Study
  Country: EG (occurrence: EG)
  Receive Date: 20190807
  Receipt Date: 20190826
  Transmission Date: 20191004
  Serious: Yes (Hospitalization, Other)
  Sender: FDA-Public Use
  Company Number: EG-SEATTLE GENETICS-2018SGN01940

PATIENT
  Sex: Male

DRUGS (3)
  1. CONA ADIONE [Concomitant]
     Dosage: UNK
     Route: 065
  2. BRENTUXIMAB VEDOTIN-MPI [Suspect]
     Active Substance: BRENTUXIMAB VEDOTIN
     Indication: ANAPLASTIC LARGE-CELL LYMPHOMA
     Dosage: UNK
     Route: 042
     Dates: start: 20180509, end: 20180711
  3. ALPHINTERN [Concomitant]
     Dosage: UNK
     Route: 065

REACTIONS (8)
  - Decreased immune responsiveness [Unknown]
  - Gingival bleeding [Unknown]
  - Haemoglobin decreased [Unknown]
  - Neuropathy peripheral [Unknown]
  - Pyrexia [Unknown]
  - White blood cell count decreased [Unknown]
  - Dysphonia [Unknown]
  - Platelet count decreased [Unknown]
